FAERS Safety Report 10760327 (Version 2)
Quarter: 2016Q1

REPORT INFORMATION
  Report Type: Other
  Country: US (occurrence: US)
  Receive Date: 20150204
  Receipt Date: 20160217
  Transmission Date: 20160525
  Serious: No
  Sender: FDA-Public Use
  Company Number: US-ACORDA-ACO_101628_2014

PATIENT
  Sex: Female

DRUGS (2)
  1. AMPYRA [Suspect]
     Active Substance: DALFAMPRIDINE
     Dosage: 10 MG, BID
     Route: 048
     Dates: end: 2015
  2. AMPYRA [Suspect]
     Active Substance: DALFAMPRIDINE
     Indication: MULTIPLE SCLEROSIS
     Dosage: 10 MG, BID
     Route: 048
     Dates: end: 201312

REACTIONS (5)
  - Therapy cessation [Unknown]
  - Dysstasia [Unknown]
  - Malaise [Not Recovered/Not Resolved]
  - Muscle spasms [Recovered/Resolved]
  - Hypotonia [Unknown]

NARRATIVE: CASE EVENT DATE: 2015
